FAERS Safety Report 9443467 (Version 3)
Quarter: 2013Q3

REPORT INFORMATION
  Report Type: Spontaneous
  Country: JP (occurrence: JP)
  Receive Date: 20130806
  Receipt Date: 20130826
  Transmission Date: 20140515
  Serious: Yes (Hospitalization)
  Sender: FDA-Public Use
  Company Number: JP-JNJFOC-20130716530

PATIENT
  Age: 51 Year
  Sex: Male

DRUGS (4)
  1. DUROTEP MT [Suspect]
     Indication: PAIN
     Route: 062
  2. DUROTEP MT [Suspect]
     Indication: PAIN
     Route: 062
  3. MORPHINE HYDROCHLORIDE [Suspect]
     Indication: PAIN
     Dosage: DOSE 50 MG/DAY
     Route: 048
  4. TRAMADOL [Suspect]
     Indication: PAIN
     Dosage: DOSE 400 MG/DAY
     Route: 065

REACTIONS (2)
  - Adrenal insufficiency [Recovered/Resolved]
  - Secondary hypogonadism [Recovered/Resolved]
